FAERS Safety Report 25996711 (Version 1)
Quarter: 2025Q4

REPORT INFORMATION
  Report Type: Spontaneous
  Country: US (occurrence: US)
  Receive Date: 20251104
  Receipt Date: 20251104
  Transmission Date: 20260117
  Serious: No
  Sender: ABBVIE
  Company Number: US-ABBVIE-6531692

PATIENT
  Age: 30 Year
  Sex: Female

DRUGS (3)
  1. BOTOX COSMETIC [Suspect]
     Active Substance: ONABOTULINUMTOXINA
     Indication: Product used for unknown indication
     Dosage: TIME INTERVAL: AS NECESSARY: TOTAL DOSE- 64 UNITS
     Route: 065
     Dates: start: 20251023, end: 20251023
  2. BOTOX COSMETIC [Suspect]
     Active Substance: ONABOTULINUMTOXINA
     Indication: Product used for unknown indication
     Dosage: TIME INTERVAL: AS NECESSARY: TOTAL DOSE-64 UNITS
     Route: 065
     Dates: start: 20251023, end: 20251023
  3. BOTOX COSMETIC [Suspect]
     Active Substance: ONABOTULINUMTOXINA
     Indication: Product used for unknown indication
     Dosage: TIME INTERVAL: AS NECESSARY: TOTAL DOSE-64 UNITS
     Route: 065
     Dates: start: 20251023, end: 20251023

REACTIONS (3)
  - Eyelid irritation [Unknown]
  - Eyelid ptosis [Unknown]
  - Metamorphopsia [Unknown]
